FAERS Safety Report 20894405 (Version 3)
Quarter: 2023Q4

REPORT INFORMATION
  Report Type: Report from Study
  Country: JP (occurrence: JP)
  Receive Date: 20220531
  Receipt Date: 20231117
  Transmission Date: 20240109
  Serious: Yes (Other)
  Sender: FDA-Public Use
  Company Number: JP-ASTELLAS-2022JP007564

PATIENT
  Age: 78 Year
  Sex: Female
  Weight: 41.2 kg

DRUGS (7)
  1. ENFORTUMAB VEDOTIN [Suspect]
     Active Substance: ENFORTUMAB VEDOTIN
     Indication: Ureteric cancer
     Dosage: 60 MG (1.25 MG/KG), UNKNOWN FREQ.
     Route: 041
     Dates: start: 20220126, end: 20220401
  2. ENFORTUMAB VEDOTIN [Suspect]
     Active Substance: ENFORTUMAB VEDOTIN
     Dosage: 60 MG (1.25 MG/KG), UNKNOWN FREQ.
     Route: 041
     Dates: start: 20220428, end: 20220428
  3. ENFORTUMAB VEDOTIN [Suspect]
     Active Substance: ENFORTUMAB VEDOTIN
     Dosage: 60 MG (1.25 MG/KG), UNKNOWN FREQ.
     Route: 041
     Dates: start: 20220512, end: 20220901
  4. AVELUMAB [Concomitant]
     Active Substance: AVELUMAB
     Indication: Transitional cell carcinoma
     Dosage: UNK UNK, UNKNOWN FREQ.
     Route: 065
     Dates: start: 20211019, end: 20220110
  5. HUMAN RED BLOOD CELL [Concomitant]
     Active Substance: HUMAN RED BLOOD CELL
     Indication: Anaemia
     Dosage: 2 UNITS, UNKNOWN FREQ.
     Route: 065
     Dates: start: 20220208
  6. HUMAN RED BLOOD CELL [Concomitant]
     Active Substance: HUMAN RED BLOOD CELL
     Indication: Anaemia
     Dosage: 2 UNITS, UNKNOWN FREQ.
     Route: 065
     Dates: start: 20220315
  7. DIPHENHYDRAMINE [Concomitant]
     Active Substance: DIPHENHYDRAMINE
     Indication: Pruritus
     Route: 061
     Dates: start: 20220623, end: 20220630

REACTIONS (8)
  - Pruritus [Recovered/Resolved]
  - Decreased appetite [Unknown]
  - Anaemia [Recovered/Resolved]
  - Anaemia [Recovered/Resolved]
  - Tumour associated fever [Unknown]
  - Nausea [Unknown]
  - Metastases to lung [Not Recovered/Not Resolved]
  - Inappropriate schedule of product administration [Unknown]

NARRATIVE: CASE EVENT DATE: 20220208
